FAERS Safety Report 7623579-5 (Version None)
Quarter: 2011Q3

REPORT INFORMATION
  Report Type: 
  Country: None (occurrence: None)
  Receive Date: 20110712
  Receipt Date: 20110627
  Transmission Date: 20111222
  Serious: Yes (Death)
  Sender: FDA-Public Use
  Company Number: OPER20110151

PATIENT
  Age: 23 Year
  Sex: Male
  Weight: 59.8748 kg

DRUGS (3)
  1. OPANA ER [Suspect]
     Indication: DRUG ABUSE
  2. HYDROCODONE BITARTRATE [Suspect]
     Indication: DRUG ABUSE
  3. ALPRAZOLAM [Suspect]

REACTIONS (7)
  - OVERDOSE [None]
  - EMPHYSEMA [None]
  - PERICARDIAL FIBROSIS [None]
  - CARDIAC DISORDER [None]
  - TOXICITY TO VARIOUS AGENTS [None]
  - PULMONARY CONGESTION [None]
  - LEFT VENTRICULAR HYPERTROPHY [None]
